FAERS Safety Report 11008259 (Version 1)
Quarter: 2015Q2

REPORT INFORMATION
  Report Type: Report from Study
  Country: US (occurrence: US)
  Receive Date: 20150410
  Receipt Date: 20150410
  Transmission Date: 20150821
  Serious: Yes (Death, Other)
  Sender: FDA-Public Use
  Company Number: US-ROCHE-1560832

PATIENT

DRUGS (4)
  1. RIBAVIRIN. [Suspect]
     Active Substance: RIBAVIRIN
     Indication: HEPATITIS C
     Route: 065
  2. PEG-INTERFERON ALFA 2A [Suspect]
     Active Substance: PEGINTERFERON ALFA-2A
     Indication: HEPATITIS C
     Route: 065
  3. SOFOSBUVIR [Suspect]
     Active Substance: SOFOSBUVIR
     Indication: HEPATITIS C
     Route: 065
  4. SIMEPREVIR [Suspect]
     Active Substance: SIMEPREVIR
     Indication: HEPATITIS C
     Route: 065

REACTIONS (10)
  - Infection [Unknown]
  - Anaemia [Unknown]
  - Leukopenia [Unknown]
  - Musculoskeletal disorder [Unknown]
  - Cytopenia [Unknown]
  - Headache [Unknown]
  - Death [Fatal]
  - Fatigue [Unknown]
  - Nausea [Unknown]
  - Thrombocytopenia [Unknown]
